FAERS Safety Report 10004811 (Version 1)
Quarter: 2014Q1

REPORT INFORMATION
  Report Type: Spontaneous
  Country: DE (occurrence: DE)
  Receive Date: 20140312
  Receipt Date: 20140312
  Transmission Date: 20141002
  Serious: Yes (Hospitalization, Other)
  Sender: FDA-Public Use
  Company Number: DE-GLAXOSMITHKLINE-B0975920A

PATIENT
  Age: 37 Year
  Sex: Female

DRUGS (2)
  1. ACITRETIN [Suspect]
     Indication: MYCOSIS FUNGOIDES
     Dosage: 10MG PER DAY
     Route: 048
     Dates: start: 201005
  2. PUVA [Suspect]
     Indication: MYCOSIS FUNGOIDES
     Route: 065
     Dates: start: 201005

REACTIONS (4)
  - Periarthritis [Recovered/Resolved]
  - Joint range of motion decreased [Unknown]
  - Oedema [Unknown]
  - Synovitis [Unknown]
